FAERS Safety Report 9452708 (Version 1)
Quarter: 2013Q3

REPORT INFORMATION
  Report Type: Spontaneous
  Country: US (occurrence: None)
  Receive Date: 20130808
  Receipt Date: 20130808
  Transmission Date: 20140515
  Serious: No
  Sender: FDA-Public Use
  Company Number: None

PATIENT
  Age: 38 Year
  Sex: Female
  Weight: 65.5 kg

DRUGS (3)
  1. CYCLOPHOSPHAMIDE [Suspect]
     Dosage: 1020 MG Q 28 IV
     Route: 042
  2. PENTOSTATIN [Suspect]
     Dosage: 69 MG Q 28
     Route: 042
  3. RITUXIMAB [Concomitant]
     Dosage: 1375 MG Q 28 DAYS
     Route: 042

REACTIONS (1)
  - Musculoskeletal pain [None]
